FAERS Safety Report 9007505 (Version 1)
Quarter: 2013Q1

REPORT INFORMATION
  Report Type: Spontaneous
  Country: US (occurrence: US)
  Receive Date: 20130111
  Receipt Date: 20130111
  Transmission Date: 20140127
  Serious: Yes (Hospitalization, Other)
  Sender: FDA-Public Use
  Company Number: US-009507513-0901USA02207

PATIENT
  Age: 13 Year
  Sex: Male
  Weight: 63.5 kg

DRUGS (5)
  1. SINGULAIR [Suspect]
     Indication: MULTIPLE ALLERGIES
     Dosage: 5 MG, HS
     Route: 048
     Dates: start: 20050315, end: 2005
  2. SINGULAIR [Suspect]
     Indication: ASTHMA
     Dosage: 5 MG, HS
     Route: 048
     Dates: start: 2005, end: 2006
  3. SINGULAIR [Suspect]
     Dosage: 5 MG, HS
     Route: 048
     Dates: start: 2006, end: 20080110
  4. SINGULAIR [Suspect]
     Indication: ASTHMA
     Dosage: 10 MG, HS
     Route: 048
     Dates: start: 20080111, end: 20080328
  5. SINGULAIR [Suspect]
     Indication: MULTIPLE ALLERGIES

REACTIONS (31)
  - Affective disorder [Recovered/Resolved]
  - Abdominal pain [Recovered/Resolved]
  - Anxiety [Recovered/Resolved]
  - Asthma exercise induced [Recovered/Resolved]
  - Belligerence [Recovered/Resolved]
  - Depression [Recovered/Resolved]
  - Drug ineffective [Recovered/Resolved]
  - Ear infection [Recovered/Resolved]
  - Emotional disorder [Recovered/Resolved]
  - Fatigue [Recovered/Resolved]
  - Irritability [Recovered/Resolved]
  - Mental disorder [Recovered/Resolved]
  - Nausea [Recovered/Resolved]
  - Respiratory disorder [Recovered/Resolved]
  - Restlessness [Recovered/Resolved]
  - School refusal [Recovered/Resolved]
  - Sinusitis [Recovered/Resolved]
  - Sleep disorder [Recovered/Resolved]
  - Sleep talking [Recovered/Resolved]
  - Social problem [Recovered/Resolved]
  - Suicidal ideation [Recovered/Resolved]
  - Thinking abnormal [Recovered/Resolved]
  - Vomiting [Recovered/Resolved]
  - Mood altered [Recovered/Resolved]
  - Asthma exercise induced [Recovered/Resolved]
  - Emotional disorder [Recovered/Resolved]
  - Respiratory disorder [Recovered/Resolved]
  - School refusal [Recovered/Resolved]
  - Sleep disorder [Recovered/Resolved]
  - Thinking abnormal [Recovered/Resolved]
  - Emotional disorder [Recovered/Resolved]
